FAERS Safety Report 6195708-4 (Version None)
Quarter: 2009Q2

REPORT INFORMATION
  Report Type: 
  Country: None (occurrence: None)
  Receive Date: 20090520
  Receipt Date: 20070405
  Transmission Date: 20091009
  Serious: Yes (Hospitalization, Other)
  Sender: FDA-Public Use
  Company Number: US-ASTRAZENECA-2006UW07702

PATIENT
  Age: 42 Year
  Sex: Female
  Weight: 145.1 kg

DRUGS (39)
  1. SEROQUEL [Suspect]
     Indication: SCHIZOPHRENIA
     Route: 048
     Dates: start: 19970101, end: 20040101
  2. SEROQUEL [Suspect]
     Route: 048
     Dates: start: 20030109
  3. GEODON [Concomitant]
  4. RISPERDAL [Concomitant]
  5. HALOPERIDOL [Concomitant]
  6. LEVAQUIN [Concomitant]
     Route: 048
  7. VENTOLIN [Concomitant]
     Dosage: EVERY FOUR HOURS
     Route: 048
  8. MILK OF MAGNESIA TAB [Concomitant]
     Dosage: 30 ML, DAILY AS NEEDED
     Route: 048
  9. K-DUR [Concomitant]
     Route: 048
  10. SINGULAIR [Concomitant]
     Route: 048
  11. GLUCOVANCE [Concomitant]
     Dosage: STRENGTH: 5/500, DAILY
     Route: 048
  12. LASIX [Concomitant]
     Route: 048
  13. ZESTRIL [Concomitant]
     Route: 048
  14. LOPRESSOR [Concomitant]
     Dosage: 25-50 MG, BID
     Route: 048
  15. NORVASC [Concomitant]
     Route: 048
  16. AQUAPHOR [Concomitant]
     Route: 061
  17. KLONOPIN [Concomitant]
     Indication: ANXIETY
     Route: 048
  18. TYLENOL [Concomitant]
     Dosage: 650 MG, EVERY 6 HRS AS  NEEDED
     Route: 048
  19. VISTARIL [Concomitant]
     Dosage: 25 MG, EVERY 6 HRS AS NEEDED
     Route: 048
  20. CATAPRES [Concomitant]
     Dosage: 0.1 MG, EVERY 4 HRS AS NEEDED
     Route: 048
  21. NOVOLIN R [Concomitant]
     Dosage: 8 UNIT, 1/2 HRS BEFORE MEAL
     Route: 058
  22. ANAPROX [Concomitant]
     Dosage: 275-500MG TWICE DAILY
     Route: 048
  23. FLEXERIL [Concomitant]
  24. DEPAKOTE [Concomitant]
     Indication: POSTPARTUM DEPRESSION
     Dosage: 250-500 MG, TWICE DAILY
     Route: 048
  25. ATENOLOL [Concomitant]
     Indication: HYPERTENSION
     Dosage: 25-100 MG DAILY
     Route: 048
  26. ARICEPT [Concomitant]
     Route: 048
  27. BACTROBAN [Concomitant]
     Dosage: DAILY ONCE
     Route: 061
  28. METFORMIN HCL [Concomitant]
     Indication: DIABETES MELLITUS
     Route: 048
  29. DIABETA [Concomitant]
     Route: 048
  30. PRANDIN [Concomitant]
     Route: 048
  31. ATIVAN [Concomitant]
     Dosage: 2 MG EVERY 6 HRS AS NEEDED
     Route: 048
  32. MOTRIN [Concomitant]
     Dosage: 600-800MG, 3 TIMES DAILY
     Route: 048
  33. LOSARTAN POTASSIUM [Concomitant]
     Route: 048
  34. SALMETEROL FLUTICASONE [Concomitant]
  35. THEOPHYLLINE [Concomitant]
     Route: 048
  36. AZITHROMYCIN [Concomitant]
  37. REMERON [Concomitant]
     Dosage: 15-30 MG
  38. PROZAC [Concomitant]
     Dosage: 20 MG DISPENSED
     Route: 048
  39. CELEBREX [Concomitant]
     Dosage: BID
     Route: 048

REACTIONS (15)
  - ARTERIOSCLEROSIS CORONARY ARTERY [None]
  - ASTHMA [None]
  - BACK PAIN [None]
  - CELLULITIS [None]
  - CHEST PAIN [None]
  - CHRONIC OBSTRUCTIVE PULMONARY DISEASE [None]
  - DEMENTIA ALZHEIMER'S TYPE [None]
  - DIABETES MELLITUS [None]
  - HYPERKERATOSIS [None]
  - ONYCHOMYCOSIS [None]
  - POLYSUBSTANCE DEPENDENCE [None]
  - SCHIZOPHRENIA [None]
  - SKIN FISSURES [None]
  - SLEEP APNOEA SYNDROME [None]
  - XEROSIS [None]
